FAERS Safety Report 6393683-0 (Version None)
Quarter: 2009Q4

REPORT INFORMATION
  Report Type: 
  Country: None (occurrence: None)
  Receive Date: 20091008
  Receipt Date: 20090925
  Transmission Date: 20100525
  Serious: Yes (Hospitalization)
  Sender: FDA-Public Use
  Company Number: FR-JNJFOC-20091001844

PATIENT
  Sex: Female

DRUGS (16)
  1. ZALDIAR [Suspect]
     Indication: PAIN IN EXTREMITY
     Route: 048
     Dates: start: 20090905, end: 20090909
  2. HYDROCORTANCYL [Suspect]
     Indication: DRUG USE FOR UNKNOWN INDICATION
     Route: 065
  3. IMOVANE [Concomitant]
  4. URAPIDIL [Concomitant]
  5. LOXEN [Concomitant]
  6. CORTANCYL [Concomitant]
  7. VASTAREL [Concomitant]
  8. MOPRAL [Concomitant]
  9. ASPEGIC 1000 [Concomitant]
  10. METOPROLOL TARTRATE [Concomitant]
  11. FOSAMAX [Concomitant]
  12. ACETAMINOPHEN [Concomitant]
  13. NOVONORM [Concomitant]
  14. TILCOTIL [Concomitant]
  15. ACETAMINOPHEN W/ PROPOXYPHENE HCL [Concomitant]
  16. OROCAL D(3) [Concomitant]

REACTIONS (1)
  - HYPONATRAEMIA [None]
